FAERS Safety Report 7384457-2 (Version None)
Quarter: 2011Q1

REPORT INFORMATION
  Report Type: 
  Country: None (occurrence: None)
  Receive Date: 20110330
  Receipt Date: 20110325
  Transmission Date: 20110831
  Serious: Yes (Other)
  Sender: FDA-Public Use
  Company Number: CO-PFIZER INC-2011069583

PATIENT
  Age: 12 Year
  Sex: Male

DRUGS (1)
  1. HYDROCORTISONE SODIUM SUCCINATE [Suspect]
     Indication: ASTHMATIC CRISIS
     Dosage: 100MG, 200MG
     Route: 042
     Dates: start: 20110302

REACTIONS (6)
  - ODYNOPHAGIA [None]
  - PRURITUS GENERALISED [None]
  - ECZEMA [None]
  - HEADACHE [None]
  - EYE PAIN [None]
  - DYSPNOEA [None]
